FAERS Safety Report 6700804-6 (Version None)
Quarter: 2010Q2

REPORT INFORMATION
  Report Type: 
  Country: None (occurrence: None)
  Receive Date: 20100428
  Receipt Date: 20100421
  Transmission Date: 20101027
  Serious: Yes (Hospitalization)
  Sender: FDA-Public Use
  Company Number: US-AMGEN-KDC395412

PATIENT
  Sex: Female

DRUGS (18)
  1. PANITUMUMAB [Suspect]
     Indication: COLORECTAL CANCER
     Route: 042
     Dates: start: 20090730
  2. AMG 102 - BLINDED [Suspect]
     Indication: NEOPLASM MALIGNANT
     Route: 042
     Dates: start: 20090730
  3. AMG 479 - BLINDED [Suspect]
     Indication: NEOPLASM
     Route: 042
     Dates: start: 20090730
  4. SYNTHROID [Concomitant]
     Route: 048
  5. ATENOLOL [Concomitant]
     Route: 048
  6. LANTUS [Concomitant]
     Route: 058
  7. ZANTAC [Concomitant]
     Route: 048
  8. PROTONIX [Concomitant]
     Route: 048
  9. TRICOR [Concomitant]
     Route: 048
  10. ATIVAN [Concomitant]
  11. COMPAZINE [Concomitant]
  12. FEXOFENADINE [Concomitant]
     Route: 048
  13. RHINOCORT [Concomitant]
     Route: 045
  14. VITAMIN D [Concomitant]
     Route: 048
  15. PROVIGIL [Concomitant]
  16. COLACE [Concomitant]
     Route: 048
  17. TYLENOL-500 [Concomitant]
     Route: 048
  18. LASIX [Concomitant]

REACTIONS (17)
  - BLOOD GLUCOSE INCREASED [None]
  - BLOOD PRESSURE SYSTOLIC INCREASED [None]
  - BLOOD URINE PRESENT [None]
  - DIARRHOEA [None]
  - ERYTHEMA [None]
  - HAEMATOCRIT DECREASED [None]
  - HAEMOGLOBIN DECREASED [None]
  - HYPOMAGNESAEMIA [None]
  - INTESTINAL OBSTRUCTION [None]
  - MUSCULAR WEAKNESS [None]
  - OEDEMA PERIPHERAL [None]
  - PLEURAL EFFUSION [None]
  - PNEUMONIA [None]
  - PROTEIN URINE PRESENT [None]
  - RASH [None]
  - SKIN DISORDER [None]
  - URINE LEUKOCYTE ESTERASE POSITIVE [None]
